FAERS Safety Report 5647127-4 (Version None)
Quarter: 2008Q1

REPORT INFORMATION
  Report Type: 
  Country: None (occurrence: None)
  Receive Date: 20080228
  Receipt Date: 20080228
  Transmission Date: 20080703
  Serious: Yes (Life-Threatening)
  Sender: FDA-Public Use
  Company Number: None

PATIENT
  Sex: Female
  Weight: 111.1313 kg

DRUGS (1)
  1. TEGRETOL-XR [Suspect]
     Indication: TRIGEMINAL NEURALGIA
     Dosage: ONE TABLET  THREE TIMES A DAY  PO
     Route: 048
     Dates: start: 20071228, end: 20080125

REACTIONS (1)
  - STEVENS-JOHNSON SYNDROME [None]
